FAERS Safety Report 9629676 (Version 4)
Quarter: 2014Q1

REPORT INFORMATION
  Report Type: Spontaneous
  Country: US (occurrence: US)
  Receive Date: 20131017
  Receipt Date: 20140310
  Transmission Date: 20141002
  Serious: Yes (Other)
  Sender: FDA-Public Use
  Company Number: US-PFIZER INC-2013258234

PATIENT
  Age: 63 Year
  Sex: Female

DRUGS (16)
  1. CELEBREX [Suspect]
     Indication: ARTHRITIS
     Dosage: 200 MG
  2. TOVIAZ [Suspect]
     Dosage: 8 MG, 1 TABLET EVERY NIGHT AT BEDTIME)
     Route: 048
  3. NORVASC [Suspect]
     Dosage: 5 MG, 2X/DAY (AT BEDTIME)
     Route: 048
  4. NORVASC [Suspect]
     Dosage: 10 MG 1 TABLET, 1X/DAY
     Route: 048
  5. PRINIVIL [Concomitant]
     Dosage: 20 MG, DAILY
     Route: 048
     Dates: start: 20130904
  6. LOPRESSOR [Concomitant]
     Dosage: 25 MG 1 TABLET, 2X/DAY
     Route: 048
     Dates: start: 20130526
  7. DICYCLOMINE [Concomitant]
     Dosage: 10 MG EVERY 12 HOURS
     Route: 048
     Dates: start: 20130516
  8. DRISDOL [Concomitant]
     Dosage: 50,000 IU WEEKLY
     Route: 048
     Dates: start: 20130428
  9. ELOCON [Concomitant]
     Dosage: 0.1 %, 2X/DAY
     Dates: start: 20121203
  10. FOSAMAX [Concomitant]
     Dosage: 70 MG, WEEKLY (SUNDAYS)
     Route: 048
  11. VICODIN [Concomitant]
     Dosage: 5-500 MG 1 TABLET, EVERY 4 HOURS AS NEEDED
     Route: 048
  12. PRILOSEC [Concomitant]
     Dosage: 20 MG, 2X/DAY
     Route: 048
  13. PRILOSEC [Concomitant]
     Dosage: 20 MG, ONCE DAILY
     Route: 048
  14. CALCIUM WITH VITAMIN D [Concomitant]
     Dosage: 600 MG, 2X/DAY
     Route: 048
  15. FESOTERODINE FUMARATE [Concomitant]
     Dosage: 8 MG 1 TABLET, 1X/DAY NIGHTLY AT BEDTIME
     Route: 048
  16. ZESTRIL [Concomitant]
     Dosage: 20 MG 1 TABLET, 1X/DAY
     Route: 048

REACTIONS (2)
  - Renal failure [Unknown]
  - Discomfort [Unknown]
